FAERS Safety Report 20733560 (Version 1)
Quarter: 2022Q2

REPORT INFORMATION
  Report Type: Spontaneous
  Country: US (occurrence: US)
  Receive Date: 20220421
  Receipt Date: 20220421
  Transmission Date: 20220721
  Serious: No
  Sender: FDA-Public Use
  Company Number: US-TEVA-2022-US-2021924

PATIENT
  Age: 68 Year
  Sex: Female

DRUGS (7)
  1. AJOVY [Suspect]
     Active Substance: FREMANEZUMAB-VFRM
     Indication: Migraine
     Dosage: FREMANEZUMAB-VFRM 225/1.5 MG/ML  (PHYSICIAN SAMPLE)
     Route: 065
  2. AJOVY [Suspect]
     Active Substance: FREMANEZUMAB-VFRM
     Dosage: FREMANEZUMAB-VFRM 225/1.5 MG/ML
     Route: 065
     Dates: start: 20190708
  3. ALBUTEROL SULFATE [Interacting]
     Active Substance: ALBUTEROL SULFATE
     Dosage: FORM STRENGTH: 90 MCG/DOSE
     Route: 065
  4. UBRELVY [Concomitant]
     Active Substance: UBROGEPANT
  5. EFFEXOR [Concomitant]
     Active Substance: VENLAFAXINE HYDROCHLORIDE
  6. FIORICET [Concomitant]
     Active Substance: ACETAMINOPHEN\BUTALBITAL\CAFFEINE
     Dosage: AS NEEDED
  7. ALBUTEROL [Concomitant]
     Active Substance: ALBUTEROL
     Dosage: ALBUTEROL INHALER , AS NEEDED; UNKNOWN MANUFACTURER

REACTIONS (10)
  - Therapeutic product effect incomplete [Unknown]
  - Product use issue [Unknown]
  - Fatigue [Recovering/Resolving]
  - Therapeutic product effect decreased [Unknown]
  - Headache [Unknown]
  - Abdominal pain lower [Unknown]
  - Fibromyalgia [Not Recovered/Not Resolved]
  - Hypertonia [Unknown]
  - Bladder irritation [Unknown]
  - Neuralgia [Unknown]

NARRATIVE: CASE EVENT DATE: 20210101
